FAERS Safety Report 14669729 (Version 4)
Quarter: 2018Q2

REPORT INFORMATION
  Report Type: Spontaneous
  Country: TR (occurrence: TR)
  Receive Date: 20180322
  Receipt Date: 20180402
  Transmission Date: 20180711
  Serious: Yes (Hospitalization, Other)
  Sender: FDA-Public Use
  Company Number: TR-ABBVIE-18S-161-2293826-00

PATIENT
  Age: 18 Month
  Sex: Female

DRUGS (5)
  1. ESMERON [Suspect]
     Active Substance: ROCURONIUM BROMIDE
     Indication: JOINT DISLOCATION REDUCTION
     Route: 042
  2. PROPOFOL. [Suspect]
     Active Substance: PROPOFOL
     Indication: JOINT DISLOCATION REDUCTION
     Route: 042
  3. METPAMID [Suspect]
     Active Substance: METOCLOPRAMIDE
     Indication: JOINT DISLOCATION
     Route: 042
  4. SEVORANE [Suspect]
     Active Substance: SEVOFLURANE
     Indication: JOINT DISLOCATION REDUCTION
     Route: 055
  5. CONTRAMAL [Suspect]
     Active Substance: TRAMADOL HYDROCHLORIDE
     Indication: SUPPORTIVE CARE
     Route: 042

REACTIONS (3)
  - Aspartate aminotransferase increased [Recovered/Resolved]
  - Alanine aminotransferase increased [Recovered/Resolved]
  - Acute hepatic failure [Recovered/Resolved]
